FAERS Safety Report 11684029 (Version 5)
Quarter: 2015Q4

REPORT INFORMATION
  Report Type: Report from Study
  Country: NZ (occurrence: NZ)
  Receive Date: 20151029
  Receipt Date: 20151110
  Transmission Date: 20160304
  Serious: Yes (Other)
  Sender: FDA-Public Use
  Company Number: NZ-ABBVIE-15K-118-1488580-00

PATIENT
  Sex: Male

DRUGS (1)
  1. HUMIRA [Suspect]
     Active Substance: ADALIMUMAB
     Indication: CROHN^S DISEASE
     Route: 058

REACTIONS (7)
  - Drug ineffective [Unknown]
  - Intestinal stenosis [Unknown]
  - Decreased appetite [Unknown]
  - Insomnia [Unknown]
  - Abdominal distension [Unknown]
  - Fatigue [Unknown]
  - Pain [Unknown]
